FAERS Safety Report 7691575-8 (Version None)
Quarter: 2011Q3

REPORT INFORMATION
  Report Type: 
  Country: None (occurrence: None)
  Receive Date: 20110817
  Receipt Date: 20110817
  Transmission Date: 20111222
  Serious: Yes (Hospitalization)
  Sender: FDA-Public Use
  Company Number: None

PATIENT
  Sex: Female
  Weight: 65.5 kg

DRUGS (3)
  1. CYCLOPHOSPHAMIDE [Suspect]
     Dosage: 1014 MG
  2. NEULASTA [Suspect]
     Dosage: 6 MG
  3. DOXORUBICIN HYDROCHLORIDE [Suspect]
     Dosage: 101 MG

REACTIONS (1)
  - FEBRILE NEUTROPENIA [None]
